FAERS Safety Report 4662004-3 (Version None)
Quarter: 2005Q2

REPORT INFORMATION
  Report Type: 
  Country: None (occurrence: None)
  Receive Date: 20050512
  Receipt Date: 20050512
  Transmission Date: 20051028
  Serious: Yes (Hospitalization)
  Sender: FDA-Public Use
  Company Number: None

PATIENT
  Sex: Male
  Weight: 83.9 kg

DRUGS (4)
  1. VELCADE [Suspect]
     Indication: WALDENSTROM'S MACROGLOBULINAEMIA
     Dosage: 1.3 MG/M2    D1,4,8,11  INTRAVENOU
     Route: 042
     Dates: start: 20041130, end: 20050407
  2. PREVACID [Concomitant]
  3. IRON [Concomitant]
  4. EPOGEN [Concomitant]

REACTIONS (2)
  - BLOOD IMMUNOGLOBULIN M INCREASED [None]
  - CONFUSIONAL STATE [None]
